FAERS Safety Report 6662447-2 (Version None)
Quarter: 2010Q1

REPORT INFORMATION
  Report Type: 
  Country: None (occurrence: None)
  Receive Date: 20100331
  Receipt Date: 20100322
  Transmission Date: 20100710
  Serious: Yes (Other)
  Sender: FDA-Public Use
  Company Number: US-WATSON-2010-03822

PATIENT
  Age: 55 Year
  Sex: Female

DRUGS (4)
  1. FLUOROURACIL [Suspect]
     Indication: BREAST CANCER STAGE IV
     Dosage: UNK
  2. CYCLOPHOSPHAMIDE [Suspect]
     Indication: BREAST CANCER STAGE IV
     Dosage: UNK
  3. METHOTREXATE [Suspect]
     Indication: BREAST CANCER STAGE IV
     Dosage: UNK
  4. DOXORUBICIN HCL [Suspect]
     Dosage: UNK

REACTIONS (1)
  - MYELOID LEUKAEMIA [None]
